FAERS Safety Report 13580977 (Version 1)
Quarter: 2017Q2

REPORT INFORMATION
  Report Type: Spontaneous
  Country: US (occurrence: US)
  Receive Date: 20170525
  Receipt Date: 20170525
  Transmission Date: 20170830
  Serious: No
  Sender: FDA-Public Use
  Company Number: US-PFIZER INC-2017225053

PATIENT
  Age: 80 Year
  Sex: Female

DRUGS (1)
  1. DILANTIN-125 [Suspect]
     Active Substance: PHENYTOIN
     Indication: STATUS EPILEPTICUS
     Dosage: UNK
     Dates: start: 20170319, end: 20170419

REACTIONS (3)
  - Drug level decreased [Unknown]
  - Inappropriate schedule of drug administration [Recovered/Resolved]
  - Drug effect incomplete [Recovered/Resolved]

NARRATIVE: CASE EVENT DATE: 20170417
